FAERS Safety Report 8777459 (Version 1)
Quarter: 2012Q4

REPORT INFORMATION
  Report Type: 
  Country: US (occurrence: US)
  Receive Date: 20120911
  Receipt Date: 20120911
  Transmission Date: 20130627
  Serious: Yes (Other)
  Sender: FDA-Public Use
  Company Number: US-JNJFOC-20120901335

PATIENT
  Sex: Female
  Weight: 58.97 kg

DRUGS (6)
  1. OXYBUTYNIN [Suspect]
     Indication: URGE INCONTINENCE
     Dosage: 12 hours once if needed
     Route: 048
     Dates: start: 20120628
  2. PREMARIN VAGINAL CREAM [Suspect]
     Indication: VULVOVAGINAL DISCOMFORT
     Dosage: duration: 2months
     Route: 067
     Dates: start: 20120608
  3. PREMARIN VAGINAL CREAM [Suspect]
     Indication: VULVOVAGINAL DISCOMFORT
     Dosage: duration: 2months
     Route: 067
  4. PREMARIN VAGINAL CREAM [Suspect]
     Indication: VULVOVAGINAL DRYNESS
     Dosage: duration: 2months
     Route: 067
     Dates: start: 20120608
  5. PREMARIN VAGINAL CREAM [Suspect]
     Indication: VULVOVAGINAL DRYNESS
     Dosage: duration: 2months
     Route: 067
  6. PREMARIN [Suspect]
     Indication: VULVOVAGINAL DRYNESS
     Dosage: duration: 2months
     Route: 048

REACTIONS (4)
  - Pollakiuria [Not Recovered/Not Resolved]
  - Bladder prolapse [Not Recovered/Not Resolved]
  - Bladder spasm [Not Recovered/Not Resolved]
  - Vulvovaginal dryness [Not Recovered/Not Resolved]
